FAERS Safety Report 8847085 (Version 1)
Quarter: 2012Q4

REPORT INFORMATION
  Report Type: Spontaneous
  Country: GB (occurrence: None)
  Receive Date: 20121016
  Receipt Date: 20121016
  Transmission Date: 20130627
  Serious: Yes (Other)
  Sender: FDA-Public Use
  Company Number: AUR-APL-2012-04337

PATIENT
  Age: 55 Year
  Sex: Female
  Weight: 82.6 kg

DRUGS (6)
  1. FLUCONAZOLE [Suspect]
     Indication: THRUSH VAGINAL
     Route: 048
     Dates: start: 20120817, end: 20120908
  2. FLUCONAZOLE [Suspect]
     Indication: THRUSH VAGINAL
     Route: 048
  3. LORATADINE (LORATADINE) [Concomitant]
  4. METOCLOPRAMIDE (METOCLOPRAMIDE) [Concomitant]
  5. PARACETAMOL (PARACETAMOL) [Concomitant]
  6. TRAMADOL (TRAMADOL) [Concomitant]

REACTIONS (2)
  - Gingival ulceration [None]
  - Mouth ulceration [None]
